FAERS Safety Report 11390861 (Version 1)
Quarter: 2015Q3

REPORT INFORMATION
  Report Type: Spontaneous
  Country: IT (occurrence: None)
  Receive Date: 20150813
  Receipt Date: 20150813
  Transmission Date: 20151125
  Serious: Yes (Other)
  Sender: FDA-Public Use
  Company Number: 2015RR-101435

PATIENT
  Age: 75 Year
  Sex: Male
  Weight: 83 kg

DRUGS (4)
  1. TOTALIP (ATORVASTATIN) [Concomitant]
  2. GEMCITABINE [Suspect]
     Active Substance: GEMCITABINE\GEMCITABINE HYDROCHLORIDE
     Indication: BLADDER TRANSITIONAL CELL CARCINOMA
     Dosage: CYCLICAL
     Route: 042
     Dates: start: 20150302, end: 20150629
  3. CARBOPLATIN (CARBOPLATIN) [Suspect]
     Active Substance: CARBOPLATIN
     Indication: BLADDER TRANSITIONAL CELL CARCINOMA
     Dosage: CYCLICAL
     Route: 042
     Dates: start: 20150302, end: 20150629
  4. NORVASC [Concomitant]
     Active Substance: AMLODIPINE BESYLATE

REACTIONS (1)
  - Hypertransaminasaemia [None]

NARRATIVE: CASE EVENT DATE: 20150326
